FAERS Safety Report 7715029-5 (Version None)
Quarter: 2011Q3

REPORT INFORMATION
  Report Type: 
  Country: None (occurrence: None)
  Receive Date: 20110829
  Receipt Date: 20110721
  Transmission Date: 20111222
  Serious: No
  Sender: FDA-Public Use
  Company Number: US-ASTRAZENECA-2011SE43734

PATIENT
  Age: 87 Year
  Sex: Female

DRUGS (4)
  1. VIMOVO [Suspect]
     Indication: OSTEOARTHRITIS
     Dosage: 500 MG / 20 MG, TWO TIMES A DAY
     Route: 048
  2. DIOVAN [Concomitant]
  3. PLAVIX [Concomitant]
  4. LOVAZA [Concomitant]

REACTIONS (2)
  - VISION BLURRED [None]
  - FATIGUE [None]
